FAERS Safety Report 4274041-1 (Version None)
Quarter: 2004Q1

REPORT INFORMATION
  Report Type: 
  Country: None (occurrence: None)
  Receive Date: 20040115
  Receipt Date: 20040107
  Transmission Date: 20041129
  Serious: Yes (Hospitalization)
  Sender: FDA-Public Use
  Company Number: K200400012

PATIENT
  Age: 70 Year
  Sex: Male

DRUGS (5)
  1. ALTACE [Suspect]
     Indication: CARDIAC FAILURE
     Dosage: 2.5 MG, QD, ORAL
     Route: 048
     Dates: start: 20030830, end: 20031002
  2. EMCONCOR (BISOPROLOL) [Concomitant]
  3. SILNOCT (ZOLPIDEM TARTRATE) [Concomitant]
  4. WARAN [Concomitant]
  5. KALIUM (POTASSIUM CHLORIDE) [Concomitant]

REACTIONS (4)
  - ALANINE AMINOTRANSFERASE INCREASED [None]
  - ASPARTATE AMINOTRANSFERASE INCREASED [None]
  - DYSPNOEA [None]
  - PNEUMONIA [None]
